FAERS Safety Report 5265394-6 (Version None)
Quarter: 2007Q1

REPORT INFORMATION
  Report Type: 
  Country: None (occurrence: None)
  Receive Date: 20070314
  Receipt Date: 20070306
  Transmission Date: 20070707
  Serious: Yes (Other)
  Sender: FDA-Public Use
  Company Number: US-PFIZER INC-2006154407

PATIENT
  Sex: Female

DRUGS (5)
  1. XALATAN [Suspect]
     Indication: INTRAOCULAR PRESSURE TEST ABNORMAL
     Route: 047
  2. XALATAN [Suspect]
     Indication: GLAUCOMA
  3. COSOPT [Suspect]
     Indication: GLAUCOMA
  4. ANTIHYPERTENSIVES [Concomitant]
  5. ANTIBIOTICS [Concomitant]

REACTIONS (1)
  - INTRAOCULAR PRESSURE TEST ABNORMAL [None]
